FAERS Safety Report 5135992-9 (Version None)
Quarter: 2006Q4

REPORT INFORMATION
  Report Type: 
  Country: None (occurrence: None)
  Receive Date: 20061020
  Receipt Date: 20061009
  Transmission Date: 20070319
  Serious: Yes (Other)
  Sender: FDA-Public Use
  Company Number: 2006124924

PATIENT
  Age: 18 Year
  Sex: Female
  Weight: 25 kg

DRUGS (1)
  1. DEPO-PROVERA [Suspect]
     Indication: MENSTRUAL DISCOMFORT
     Dosage: INTRAMUSCULAR
     Route: 030

REACTIONS (5)
  - CACHEXIA [None]
  - GASTROINTESTINAL DISORDER [None]
  - MALABSORPTION [None]
  - MUSCLE ATROPHY [None]
  - SCOLIOSIS [None]
